FAERS Safety Report 19543478 (Version 2)
Quarter: 2021Q3

REPORT INFORMATION
  Report Type: Spontaneous
  Country: US (occurrence: US)
  Receive Date: 20210714
  Receipt Date: 20210826
  Transmission Date: 20211014
  Serious: Yes (Other)
  Sender: FDA-Public Use
  Company Number: US-SA-2021SA224370

PATIENT
  Age: 63 Year
  Sex: Female

DRUGS (2)
  1. ZANTAC [Suspect]
     Active Substance: RANITIDINE HYDROCHLORIDE
     Indication: DYSPEPSIA
     Dosage: 150 MG, QD
     Dates: start: 200812, end: 201109
  2. ZANTAC [Suspect]
     Active Substance: RANITIDINE HYDROCHLORIDE
     Indication: GASTROOESOPHAGEAL REFLUX DISEASE
     Dosage: 300 MG
     Dates: start: 20101201, end: 20180301

REACTIONS (3)
  - Colorectal cancer [Unknown]
  - Colon cancer [Unknown]
  - Gastrointestinal carcinoma [Unknown]

NARRATIVE: CASE EVENT DATE: 20110901
